FAERS Safety Report 9661230 (Version 1)
Quarter: 2013Q4

REPORT INFORMATION
  Report Type: Spontaneous
  Country: US (occurrence: None)
  Receive Date: 20131030
  Receipt Date: 20131030
  Transmission Date: 20140711
  Serious: No
  Sender: FDA-Public Use
  Company Number: 2012306672

PATIENT
  Age: 63 Year
  Sex: Female

DRUGS (3)
  1. FRAGMIN (DALTEPARIN SODIUM) SOLUTION FOR INJECTION [Suspect]
     Indication: DEEP VEIN THROMBOSIS
     Dates: start: 20120927, end: 20121012
  2. LOVENOX (HEPARIN-FRACTION, SODIUM SALT) [Concomitant]
  3. COUMADIN (WARFARIN SODIUM) [Concomitant]

REACTIONS (4)
  - Injection site pain [None]
  - Injection site bruising [None]
  - Haematoma [None]
  - Contusion [None]
